FAERS Safety Report 10026247 (Version 1)
Quarter: 2014Q1

REPORT INFORMATION
  Report Type: Spontaneous
  Country: FR (occurrence: FR)
  Receive Date: 20140320
  Receipt Date: 20140320
  Transmission Date: 20141002
  Serious: Yes (Hospitalization)
  Sender: FDA-Public Use
  Company Number: FR-TEVA-467778ISR

PATIENT
  Age: 44 Year
  Sex: 0

DRUGS (14)
  1. PARACETAMOL [Suspect]
     Dosage: IF NECESSARY: 1G, EVERY 6 HOURS
     Route: 042
     Dates: start: 20140118, end: 20140127
  2. CEFTRIAXONE [Suspect]
     Dosage: 1 GRAM DAILY;
     Route: 042
     Dates: start: 20140118
  3. SPASFON [Suspect]
     Dosage: 6 DOSAGE FORMS DAILY;
     Route: 042
     Dates: start: 20140119, end: 20140127
  4. PERINUTRIFLEX [Suspect]
     Dosage: 1250 ML DAILY;
     Route: 042
     Dates: start: 20140122, end: 20140126
  5. CHLORURE DE SODIUM 0,9%, BAXTER [Suspect]
     Dosage: 1 LITERS DAILY;
     Route: 041
     Dates: start: 20140118, end: 20140127
  6. TOPALGIC 100MG/2ML [Suspect]
     Dosage: IF NECESSARY: 50MG ONCE, EVERY 6 HOURS
     Route: 042
     Dates: start: 20140118, end: 20140127
  7. FLAGYL [Suspect]
     Dosage: 1500 MILLIGRAM DAILY;
     Route: 042
     Dates: start: 20140118, end: 20140127
  8. INEXIUM 40MG [Suspect]
     Dosage: 40 MILLIGRAM DAILY;
     Route: 042
     Dates: start: 20140122, end: 20140127
  9. DEBRIDAT 50MG/5ML [Suspect]
     Dosage: 6 DOSAGE FORMS DAILY;
     Route: 042
     Dates: start: 20140123, end: 20140127
  10. GLUCIDION [Concomitant]
     Dosage: 1.5 LITERS DAILY;
     Route: 042
     Dates: start: 20140118, end: 20140121
  11. ZOPHREN [Concomitant]
     Dosage: 4MG/6H
     Route: 042
     Dates: start: 20140121, end: 20140124
  12. GENTAMICINE [Concomitant]
     Dosage: 400 MILLIGRAM DAILY;
     Route: 042
     Dates: start: 20140118, end: 20140120
  13. LOVENOX [Concomitant]
     Dosage: .4 MILLIGRAM DAILY;
     Route: 058
     Dates: start: 20140118
  14. LASILIX [Concomitant]
     Dosage: 60 MILLIGRAM DAILY;
     Route: 042
     Dates: start: 20140121, end: 20140122

REACTIONS (2)
  - Lymphangitis [Not Recovered/Not Resolved]
  - Thrombophlebitis superficial [Not Recovered/Not Resolved]
